FAERS Safety Report 8790545 (Version 1)
Quarter: 2012Q4

REPORT INFORMATION
  Report Type: Spontaneous
  Country: US (occurrence: None)
  Receive Date: 20120912
  Receipt Date: 20120912
  Transmission Date: 20130627
  Serious: Yes (Disabling)
  Sender: FDA-Public Use
  Company Number: None

PATIENT
  Age: 48 Year
  Sex: Female
  Weight: 88.91 kg

DRUGS (2)
  1. AMLODIPINE [Suspect]
     Dosage: 1  once a day  po
     Route: 048
     Dates: start: 20120401, end: 20120819
  2. AMLODIPINE [Suspect]
     Dosage: 1  once a day  po
     Route: 048
     Dates: start: 20120823, end: 20120825

REACTIONS (4)
  - Cough [None]
  - Sinusitis [None]
  - Insomnia [None]
  - Impaired work ability [None]
